FAERS Safety Report 7414914-1 (Version None)
Quarter: 2011Q2

REPORT INFORMATION
  Report Type: 
  Country: None (occurrence: None)
  Receive Date: 20110414
  Receipt Date: 20110225
  Transmission Date: 20111010
  Serious: Yes (Hospitalization, Other)
  Sender: FDA-Public Use
  Company Number: US-BAYER-201036866NA

PATIENT
  Age: 46 Year
  Sex: Female

DRUGS (11)
  1. ASPIRIN [Concomitant]
     Dosage: 325 MG, UNK
     Route: 048
  2. TRIAMCINOLONE [Concomitant]
     Dosage: 0.1 %, UNK
  3. ACYCLOVIR [Concomitant]
     Dosage: 400 MG, UNK
     Route: 048
     Dates: start: 20050523
  4. GUAIFEN-C [Concomitant]
     Dosage: 100/10MG
     Route: 048
     Dates: start: 20070406
  5. OXCARBAZEPINE [Concomitant]
     Dosage: 300 MG, UNK
     Route: 048
     Dates: start: 20080926
  6. OCUFLOX [Concomitant]
     Dosage: 0.3 %, UNK
  7. YASMIN [Suspect]
     Indication: CONTRACEPTION
     Dosage: UNK UNK, QD
     Route: 048
     Dates: start: 20020711, end: 20080924
  8. BENZONATATE [Concomitant]
     Dosage: 100 MG, UNK
     Route: 048
     Dates: start: 20051115
  9. SIMVASTATIN [Concomitant]
     Dosage: 20 MG, UNK
     Route: 048
     Dates: start: 20080926
  10. FLUTICASONE [Concomitant]
     Dosage: 50 MG, UNK
     Route: 045
  11. AMOXICILLIN [Concomitant]
     Dosage: 500 MG, UNK
     Route: 048
     Dates: start: 20081015

REACTIONS (12)
  - BALANCE DISORDER [None]
  - PAIN [None]
  - HYPOAESTHESIA [None]
  - ASTHENIA [None]
  - MEMORY IMPAIRMENT [None]
  - DEPRESSION [None]
  - FEAR [None]
  - CEREBROVASCULAR ACCIDENT [None]
  - MUSCULOSKELETAL PAIN [None]
  - DROOLING [None]
  - CONVULSION [None]
  - DISTURBANCE IN ATTENTION [None]
